FAERS Safety Report 19288244 (Version 2)
Quarter: 2021Q2

REPORT INFORMATION
  Report Type: Spontaneous
  Country: JP (occurrence: JP)
  Receive Date: 20210521
  Receipt Date: 20210617
  Transmission Date: 20210717
  Serious: Yes (Hospitalization, Other)
  Sender: FDA-Public Use
  Company Number: JP-GLAXOSMITHKLINE-JPCH2021GSK030430

PATIENT
  Age: 67 Year
  Sex: Female

DRUGS (5)
  1. AMLODIPINE [Concomitant]
     Active Substance: AMLODIPINE BESYLATE
     Indication: PRODUCT USED FOR UNKNOWN INDICATION
     Dosage: 1 DF, 1D
     Route: 048
  2. IBUPROFEN. [Suspect]
     Active Substance: IBUPROFEN
     Indication: DENTAL CARIES
     Dosage: 6 DF, TID 100
     Route: 048
  3. CEFDITOREN PIVOXIL. [Concomitant]
     Active Substance: CEFDITOREN PIVOXIL
     Indication: DENTAL CARIES
     Dosage: UNK
     Route: 048
  4. BEZAFIBRATE [Concomitant]
     Active Substance: BEZAFIBRATE
     Indication: PRODUCT USED FOR UNKNOWN INDICATION
     Dosage: 1 DF, 1D, 200, CONTROLLED?RELEASE
     Route: 048
  5. MAGNESIUM OXIDE. [Concomitant]
     Active Substance: MAGNESIUM OXIDE
     Indication: PRODUCT USED FOR UNKNOWN INDICATION
     Dosage: 3 DF, 1D, 250
     Route: 048

REACTIONS (13)
  - Dyspnoea [Unknown]
  - Gastrointestinal wall thickening [Recovered/Resolved]
  - Anaemia [Recovered/Resolved]
  - Small intestinal obstruction [Recovered/Resolved]
  - Palpitations [Unknown]
  - Foreign body in gastrointestinal tract [Recovered/Resolved]
  - Small intestine ulcer [Recovered/Resolved]
  - Abdominal pain [Recovered/Resolved]
  - Gastrointestinal oedema [Recovered/Resolved]
  - Ileal stenosis [Recovered/Resolved]
  - Ileal ulcer [Recovered/Resolved]
  - Nausea [Recovered/Resolved]
  - Conjunctival pallor [Unknown]
